FAERS Safety Report 8347828-3 (Version None)
Quarter: 2012Q2

REPORT INFORMATION
  Report Type: 
  Country: None (occurrence: None)
  Receive Date: 20120509
  Receipt Date: 20120502
  Transmission Date: 20120825
  Serious: Yes (Hospitalization)
  Sender: FDA-Public Use
  Company Number: FR-GLAXOSMITHKLINE-B0776478A

PATIENT
  Sex: Female

DRUGS (7)
  1. TRANXENE [Concomitant]
     Indication: ANXIETY
     Dosage: 10MG THREE TIMES PER DAY
     Route: 048
     Dates: start: 20111124
  2. QUETIAPINE [Concomitant]
     Indication: BIPOLAR DISORDER
     Dosage: 300MG PER DAY
     Route: 048
     Dates: start: 20111206
  3. LOXAPINE HCL [Concomitant]
     Indication: BIPOLAR DISORDER
     Dosage: 20DROP PER DAY
     Route: 048
     Dates: start: 20111117, end: 20111215
  4. VENLAFAXINE [Concomitant]
     Indication: DEPRESSION
     Dosage: 225MG PER DAY
     Route: 048
     Dates: start: 20111115, end: 20111215
  5. ZOPICLONE [Concomitant]
     Dosage: 1UNIT PER DAY
     Route: 048
     Dates: start: 20111114, end: 20111215
  6. AUGMENTIN '125' [Suspect]
     Indication: UPPER RESPIRATORY TRACT INFECTION
     Dosage: 1UNIT THREE TIMES PER DAY
     Route: 042
     Dates: start: 20111208, end: 20111209
  7. LAMOTRIGINE [Suspect]
     Indication: BIPOLAR DISORDER
     Route: 048
     Dates: start: 20111128, end: 20111212

REACTIONS (8)
  - DRUG RASH WITH EOSINOPHILIA AND SYSTEMIC SYMPTOMS [None]
  - HEPATOCELLULAR INJURY [None]
  - PRURITUS [None]
  - RASH MACULO-PAPULAR [None]
  - PYREXIA [None]
  - CONJUNCTIVITIS [None]
  - GINGIVITIS [None]
  - URTICARIA [None]
